FAERS Safety Report 5146897-1 (Version None)
Quarter: 2006Q4

REPORT INFORMATION
  Report Type: 
  Country: None (occurrence: None)
  Receive Date: 20061109
  Receipt Date: 20061030
  Transmission Date: 20070319
  Serious: Yes (Death, Hospitalization, Other)
  Sender: FDA-Public Use
  Company Number: PHBS2006TW16862

PATIENT
  Age: 60 Year
  Sex: Female

DRUGS (4)
  1. CYCLOSPORINE [Suspect]
     Indication: RENAL TRANSPLANT
     Dosage: 50 MG/D
     Route: 065
  2. MYCOPHENOLATE MOFETIL [Suspect]
     Indication: RENAL TRANSPLANT
     Dosage: 250 MG, BID
  3. PREDNISOLONE [Suspect]
     Indication: RENAL TRANSPLANT
     Dosage: 5 MG/D
  4. RAPAMUNE [Suspect]
     Indication: RENAL TRANSPLANT
     Dosage: 1 MG/D

REACTIONS (21)
  - BLOOD CREATININE INCREASED [None]
  - BLOOD LACTIC ACID INCREASED [None]
  - CHRONIC ALLOGRAFT NEPHROPATHY [None]
  - FACIAL PALSY [None]
  - HEMIPARESIS [None]
  - LABORATORY TEST ABNORMAL [None]
  - LIPIDS INCREASED [None]
  - LYMPHOPROLIFERATIVE DISORDER [None]
  - MUSCLE TWITCHING [None]
  - NEPHROPATHY TOXIC [None]
  - NEUROLOGICAL SYMPTOM [None]
  - NEUTROPENIA [None]
  - PARTIAL SEIZURES [None]
  - PNEUMONIA [None]
  - POSTURE ABNORMAL [None]
  - SEPTIC SHOCK [None]
  - SLUGGISHNESS [None]
  - T-CELL LYMPHOMA [None]
  - TONGUE PARALYSIS [None]
  - TUMOUR EXCISION [None]
  - URINARY TRACT INFECTION [None]
